FAERS Safety Report 6418249 (Version 5)
Quarter: 2019Q1

REPORT INFORMATION
  Report Type: Spontaneous
  Country: GB (occurrence: GB)
  Receive Date: 20070918
  Receipt Date: 20190115
  Transmission Date: 20190418
  Serious: Yes (Other)
  Sender: FDA-Public Use
  Company Number: GB-PFIZER INC-2007074927

PATIENT
  Age: 57 Year
  Sex: Female
  Weight: 120.7 kg

DRUGS (5)
  1. NEUPOGEN [Concomitant]
     Active Substance: FILGRASTIM
     Indication: ARTHRITIS
     Dosage: 480 UG, DAILY 4 TIMES WITH EACH CAPCITABINE THERAPY.
     Route: 058
     Dates: start: 20070524
  2. XELODA [Suspect]
     Active Substance: CAPECITABINE
     Indication: BREAST CANCER METASTATIC
     Dosage: 2000 MG, UNK
     Route: 065
     Dates: start: 20070517
  3. LASIX [Concomitant]
     Active Substance: FUROSEMIDE
     Indication: HYPERTENSION
     Dosage: 40 MG, UNK
  4. DIFLUCAN [Suspect]
     Active Substance: FLUCONAZOLE
     Indication: PROPHYLAXIS
     Dosage: 100 MG, DAILY
     Route: 048
     Dates: start: 20070705, end: 20070709
  5. TAXOTERE [Suspect]
     Active Substance: DOCETAXEL
     Indication: BREAST CANCER METASTATIC
     Dosage: 75MG/M2 (170MG, FREQUENCY: 1 PER 3 WEEK)
     Route: 042
     Dates: start: 20070517

REACTIONS (20)
  - Diarrhoea [Recovered/Resolved]
  - Fungal infection [Recovered/Resolved]
  - Onycholysis [Not Recovered/Not Resolved]
  - Pyrexia [Recovered/Resolved]
  - Vulvovaginal mycotic infection [Recovered/Resolved]
  - Skin exfoliation [Recovering/Resolving]
  - Vomiting [Recovered/Resolved]
  - Tongue coated [Recovering/Resolving]
  - Rash [Not Recovered/Not Resolved]
  - Pain [Not Recovered/Not Resolved]
  - Hypoaesthesia [Recovering/Resolving]
  - Rhinitis [Recovering/Resolving]
  - Lacrimation increased [Not Recovered/Not Resolved]
  - Palmar-plantar erythrodysaesthesia syndrome [Recovering/Resolving]
  - Abdominal pain [Recovering/Resolving]
  - White blood cell count decreased [Not Recovered/Not Resolved]
  - Nausea [Recovered/Resolved]
  - Drooling [Unknown]
  - Fatigue [Recovering/Resolving]
  - Hypotension [Not Recovered/Not Resolved]

NARRATIVE: CASE EVENT DATE: 20070524
